FAERS Safety Report 16732655 (Version 2)
Quarter: 2019Q3

REPORT INFORMATION
  Report Type: Report from Study
  Country: None (occurrence: NL)
  Receive Date: 20190823
  Receipt Date: 20190902
  Transmission Date: 20191005
  Serious: Yes (Death, Life-Threatening)
  Sender: FDA-Public Use
  Company Number: NL-ABBVIE-19K-114-2898382-00

PATIENT
  Age: 83 Year
  Sex: Male

DRUGS (1)
  1. DUODOPA [Suspect]
     Active Substance: CARBIDOPA\LEVODOPA
     Indication: PARKINSON^S DISEASE
     Route: 050
     Dates: start: 20160809, end: 20190819

REACTIONS (2)
  - Death [Fatal]
  - Terminal state [Not Recovered/Not Resolved]

NARRATIVE: CASE EVENT DATE: 201908
